FAERS Safety Report 4523159-4 (Version None)
Quarter: 2004Q4

REPORT INFORMATION
  Report Type: 
  Country: None (occurrence: None)
  Receive Date: 20041207
  Receipt Date: 20041207
  Transmission Date: 20050328
  Serious: Yes (Other)
  Sender: FDA-Public Use
  Company Number: None

PATIENT
  Age: 59 Year
  Sex: Female
  Weight: 65.7716 kg

DRUGS (1)
  1. VIOXX [Suspect]
     Indication: ARTHRALGIA

REACTIONS (2)
  - CARDIAC DISORDER [None]
  - MYOCARDIAL ISCHAEMIA [None]
